FAERS Safety Report 10631445 (Version 1)
Quarter: 2014Q4

REPORT INFORMATION
  Report Type: Spontaneous
  Country: US (occurrence: US)
  Receive Date: 20141205
  Receipt Date: 20141205
  Transmission Date: 20150529
  Serious: No
  Sender: FDA-Public Use
  Company Number: US-BRISTOL-MYERS SQUIBB COMPANY-21068531

PATIENT
  Age: 56 Year
  Sex: Female
  Weight: 86.17 kg

DRUGS (12)
  1. TRICOR [Concomitant]
     Active Substance: FENOFIBRATE
     Dosage: TAB
  2. DIOVAN HCT [Concomitant]
     Active Substance: HYDROCHLOROTHIAZIDE\VALSARTAN
     Dosage: TAB 80/12.5
  3. PREDNISONE. [Concomitant]
     Active Substance: PREDNISONE
     Dosage: TABS
  4. EFFEXOR XR [Concomitant]
     Active Substance: VENLAFAXINE HYDROCHLORIDE
     Dosage: CAPS
  5. ALLEGRA [Concomitant]
     Active Substance: FEXOFENADINE HYDROCHLORIDE
     Dosage: TABS
  6. ACTONEL [Concomitant]
     Active Substance: RISEDRONATE SODIUM
     Dosage: TAB
  7. ABATACEPT SUBQ INJECTION 125MG/ML [Suspect]
     Active Substance: ABATACEPT
     Dosage: ON ORENCIA APPROX 5 WEEKS
     Route: 058
  8. TOPROL XL [Concomitant]
     Active Substance: METOPROLOL SUCCINATE
     Dosage: TAB
  9. DETROL LA [Concomitant]
     Active Substance: TOLTERODINE TARTRATE
     Dosage: CAPS
  10. SYNTHROID [Concomitant]
     Active Substance: LEVOTHYROXINE SODIUM
     Dosage: TABS
  11. GABAPENTIN. [Concomitant]
     Active Substance: GABAPENTIN
     Dosage: CAP
  12. ZITHROMAX [Concomitant]
     Active Substance: AZITHROMYCIN DIHYDRATE
     Dosage: TABS

REACTIONS (2)
  - Arthralgia [Unknown]
  - Pain in extremity [Unknown]
